FAERS Safety Report 5328388-8 (Version None)
Quarter: 2007Q2

REPORT INFORMATION
  Report Type: 
  Country: None (occurrence: None)
  Receive Date: 20070518
  Receipt Date: 20070514
  Transmission Date: 20071010
  Serious: No
  Sender: FDA-Public Use
  Company Number: JP-BRACCO-BRO-011523

PATIENT
  Sex: Female

DRUGS (6)
  1. IOPAMIRON [Suspect]
     Dosage: 2.5 ML/MIN
     Route: 016
     Dates: start: 20070123, end: 20070123
  2. IOPAMIRON [Suspect]
     Indication: ARTERIOGRAM CORONARY
     Dosage: 2.5 ML/MIN
     Route: 016
     Dates: start: 20070123, end: 20070123
  3. TICLOPIDINE HCL [Concomitant]
     Route: 050
  4. ASPIRIN [Concomitant]
     Route: 050
  5. AMLODIN [Concomitant]
     Route: 050
  6. LIPITOR                            /01326101/ [Concomitant]
     Route: 050

REACTIONS (1)
  - TOXIC SKIN ERUPTION [None]
